FAERS Safety Report 5472750-X (Version None)
Quarter: 2007Q4

REPORT INFORMATION
  Report Type: 
  Country: None (occurrence: None)
  Receive Date: 20071001
  Receipt Date: 20061023
  Transmission Date: 20080405
  Serious: No
  Sender: FDA-Public Use
  Company Number: US-ASTRAZENECA-2006UW20409

PATIENT
  Age: 77 Year
  Sex: Male

DRUGS (4)
  1. ARIMIDEX [Suspect]
     Indication: BREAST CANCER RECURRENT
     Route: 048
     Dates: start: 20061001
  2. COZAAR [Concomitant]
  3. PLAVIX [Concomitant]
  4. WATER PILL [Concomitant]

REACTIONS (3)
  - CONSTIPATION [None]
  - DYSURIA [None]
  - FATIGUE [None]
